FAERS Safety Report 13961112 (Version 2)
Quarter: 2017Q4

REPORT INFORMATION
  Report Type: Spontaneous
  Country: JP (occurrence: JP)
  Receive Date: 20170912
  Receipt Date: 20171004
  Transmission Date: 20180320
  Serious: Yes (Hospitalization)
  Sender: FDA-Public Use
  Company Number: JP-GLAXOSMITHKLINE-JP2017JPN127952

PATIENT
  Age: 69 Year
  Sex: Female
  Weight: 48 kg

DRUGS (26)
  1. LAMICTAL [Suspect]
     Active Substance: LAMOTRIGINE
     Dosage: 25 MG, BID
     Route: 048
     Dates: start: 20170424
  2. LAMICTAL [Suspect]
     Active Substance: LAMOTRIGINE
     Dosage: 100 MG, BID
     Route: 048
     Dates: start: 20170908
  3. LAMICTAL [Suspect]
     Active Substance: LAMOTRIGINE
     Dosage: 80 MG, 1D
     Route: 048
     Dates: start: 20170915
  4. LAMICTAL [Suspect]
     Active Substance: LAMOTRIGINE
     Dosage: 140 MG, 1D
     Route: 048
     Dates: start: 20170824
  5. LAMICTAL [Suspect]
     Active Substance: LAMOTRIGINE
     Dosage: 135 MG, 1D
     Route: 048
     Dates: start: 20170901
  6. ENBREL [Concomitant]
     Active Substance: ETANERCEPT
     Indication: SJOGREN^S SYNDROME
     Dosage: UNK
  7. METOLATE [Concomitant]
     Active Substance: METHOTREXATE
     Indication: SJOGREN^S SYNDROME
     Dosage: UNK
  8. LAMICTAL [Suspect]
     Active Substance: LAMOTRIGINE
     Dosage: 95 MG, 1D
     Route: 048
     Dates: start: 20170919
  9. OLMETEC OD [Concomitant]
     Active Substance: OLMESARTAN MEDOXOMIL
     Dosage: 20 MG, 1D
  10. LAMICTAL [Suspect]
     Active Substance: LAMOTRIGINE
     Dosage: 60 MG, BID
     Route: 048
     Dates: start: 20170512
  11. LAMICTAL [Suspect]
     Active Substance: LAMOTRIGINE
     Dosage: 65 MG, BID
     Route: 048
     Dates: start: 20170623, end: 20170704
  12. LAMICTAL [Suspect]
     Active Substance: LAMOTRIGINE
     Dosage: 125 MG, 1D
     Route: 048
     Dates: start: 20170728
  13. LAMICTAL [Suspect]
     Active Substance: LAMOTRIGINE
     Dosage: 145 MG, 1D
     Route: 048
     Dates: start: 20170803, end: 20170823
  14. ENBREL [Concomitant]
     Active Substance: ETANERCEPT
     Indication: MIXED CONNECTIVE TISSUE DISEASE
  15. LAMICTAL [Suspect]
     Active Substance: LAMOTRIGINE
     Dosage: 60 MG, BID
     Route: 048
     Dates: start: 20170705
  16. LAMICTAL [Suspect]
     Active Substance: LAMOTRIGINE
     Dosage: 50 MG, BID
     Route: 048
     Dates: start: 20170504
  17. LAMICTAL [Suspect]
     Active Substance: LAMOTRIGINE
     Dosage: 100 MG, 1D
     Route: 048
     Dates: start: 20170920
  18. HYDANTOL [Concomitant]
     Active Substance: PHENYTOIN SODIUM
     Dosage: 50 MG, 1D
  19. LAMICTAL [Suspect]
     Active Substance: LAMOTRIGINE
     Dosage: 130 MG, 1D
     Route: 048
     Dates: start: 20170904
  20. HORIZON [Concomitant]
     Active Substance: DIAZEPAM
     Dosage: 6 MG, 1D
  21. METOLATE [Concomitant]
     Active Substance: METHOTREXATE
     Indication: MIXED CONNECTIVE TISSUE DISEASE
  22. LAMICTAL [Suspect]
     Active Substance: LAMOTRIGINE
     Indication: CONVULSION PROPHYLAXIS
     Dosage: 25 MG, QD
     Route: 048
     Dates: start: 20170328
  23. LAMICTAL [Suspect]
     Active Substance: LAMOTRIGINE
     Dosage: 142 MG, 1D
     Route: 048
     Dates: start: 201708
  24. LAMICTAL [Suspect]
     Active Substance: LAMOTRIGINE
     Dosage: 85 MG, 1D
     Route: 048
     Dates: start: 20170911
  25. SALIGREN [Concomitant]
     Indication: SJOGREN^S SYNDROME
     Dosage: 90 MG, 1D
  26. SALIGREN [Concomitant]
     Indication: MIXED CONNECTIVE TISSUE DISEASE

REACTIONS (2)
  - Dry mouth [Recovered/Resolved]
  - Arthralgia [Recovered/Resolved]

NARRATIVE: CASE EVENT DATE: 20170804
